FAERS Safety Report 24055351 (Version 1)
Quarter: 2024Q3

REPORT INFORMATION
  Report Type: Spontaneous
  Country: US (occurrence: None)
  Receive Date: 20240703
  Receipt Date: 20240703
  Transmission Date: 20241017
  Serious: Yes (Death)
  Sender: Public
  Company Number: None

PATIENT
  Age: 68 Year
  Sex: Male
  Weight: 65.25 kg

DRUGS (1)
  1. LENVIMA [Suspect]
     Active Substance: LENVATINIB
     Indication: Hepatocellular carcinoma
     Dosage: 4 MG DAILY ORAL
     Route: 048
     Dates: start: 20240528, end: 20240627

REACTIONS (2)
  - Therapy cessation [None]
  - Homicide [None]

NARRATIVE: CASE EVENT DATE: 20240627
